FAERS Safety Report 11599259 (Version 1)
Quarter: 2015Q4

REPORT INFORMATION
  Report Type: Report from Study
  Country: US (occurrence: US)
  Receive Date: 20151006
  Receipt Date: 20151006
  Transmission Date: 20160304
  Serious: Yes (Hospitalization)
  Sender: FDA-Public Use
  Company Number: US-ABBVIE-15K-163-1473344-00

PATIENT
  Age: 74 Year
  Sex: Male

DRUGS (1)
  1. HUMIRA [Suspect]
     Active Substance: ADALIMUMAB
     Indication: COLITIS ULCERATIVE
     Route: 065
     Dates: start: 20150717

REACTIONS (4)
  - Dehydration [Unknown]
  - Hyperkalaemia [Unknown]
  - Upper respiratory tract infection [Recovering/Resolving]
  - Oedema [Recovered/Resolved]

NARRATIVE: CASE EVENT DATE: 2015
